FAERS Safety Report 8393088-7 (Version None)
Quarter: 2012Q2

REPORT INFORMATION
  Report Type: 
  Country: None (occurrence: None)
  Receive Date: 20120529
  Receipt Date: 20120402
  Transmission Date: 20120825
  Serious: No
  Sender: FDA-Public Use
  Company Number: US-ABBOTT-12P-163-0921777-00

PATIENT
  Sex: Male
  Weight: 96.248 kg

DRUGS (11)
  1. VENLAFAXINE HCL EXTENDED-RELEASE [Concomitant]
     Indication: PRODUCT USED FOR UNKNOWN INDICATION
  2. METOPROLOL TARTRATE [Concomitant]
     Indication: BLOOD PRESSURE
  3. ANDROGEL [Suspect]
     Indication: BLOOD TESTOSTERONE DECREASED
     Dosage: PUMP, 1.25 GRAM DAILY
     Dates: start: 20120101, end: 20120301
  4. PRAVASTATIN [Concomitant]
     Indication: BLOOD CHOLESTEROL
  5. BACLOFEN [Concomitant]
     Indication: MUSCLE RELAXANT THERAPY
  6. HYDROMORPHONE HCL [Concomitant]
     Indication: PAIN
  7. WARFARIN SODIUM [Concomitant]
     Indication: ANTICOAGULANT THERAPY
  8. ALPRAZOLAM [Concomitant]
     Indication: ANXIETY
  9. OXYBUTYNIN [Concomitant]
     Indication: PRODUCT USED FOR UNKNOWN INDICATION
  10. MORPHONE SULFATE ER [Concomitant]
     Indication: PAIN
  11. ANDROGEL [Suspect]
     Dosage: 2 PUMPS, 2.5 GRAM DAILY
     Dates: start: 20120301

REACTIONS (1)
  - BLOOD TESTOSTERONE DECREASED [None]
